FAERS Safety Report 9031148 (Version 1)
Quarter: 2013Q1

REPORT INFORMATION
  Report Type: Spontaneous
  Country: AT (occurrence: AT)
  Receive Date: 20130123
  Receipt Date: 20130123
  Transmission Date: 20140127
  Serious: Yes (Hospitalization)
  Sender: FDA-Public Use
  Company Number: AT-AMGEN-AUTSP2012078940

PATIENT
  Age: 59 Year
  Sex: Female
  Weight: 75 kg

DRUGS (3)
  1. XGEVA [Suspect]
     Indication: METASTASES TO BONE
     Dosage: UNK UNK, QMO
     Route: 058
     Dates: start: 201205, end: 201210
  2. XELODA [Concomitant]
     Indication: BREAST CANCER
     Dosage: 2500 MG, UNK
     Dates: start: 201210, end: 20121030
  3. AVASTIN /00848101/ [Concomitant]
     Dosage: UNK
     Dates: start: 20121016, end: 20121016

REACTIONS (3)
  - Diarrhoea [Unknown]
  - Paraesthesia [Recovered/Resolved]
  - Hypocalcaemia [Recovered/Resolved]
